FAERS Safety Report 5489540-4 (Version None)
Quarter: 2007Q4

REPORT INFORMATION
  Report Type: 
  Country: None (occurrence: None)
  Receive Date: 20071009
  Receipt Date: 20070423
  Transmission Date: 20080405
  Serious: Yes (Other)
  Sender: FDA-Public Use
  Company Number: PHEH2007US06122

PATIENT
  Age: 51 Year
  Sex: Female
  Weight: 96.6 kg

DRUGS (2)
  1. COMBIPATCH [Suspect]
     Indication: MENOPAUSE
     Dosage: 50/140 BIW
     Dates: start: 20000601, end: 20020619
  2. PROVERA [Suspect]
     Indication: MENOPAUSE
     Dosage: 10MG QD 10 DAYS/MO
     Dates: start: 19910401, end: 20020101

REACTIONS (25)
  - ABDOMINAL PAIN UPPER [None]
  - BREAST CANCER IN SITU [None]
  - BREAST DISCOMFORT [None]
  - BREAST FIBROSIS [None]
  - BREAST NECROSIS [None]
  - BREAST OPERATION [None]
  - BREAST PROSTHESIS IMPLANTATION [None]
  - BREAST RECONSTRUCTION [None]
  - CHOLECYSTECTOMY [None]
  - CHOLECYSTITIS CHRONIC [None]
  - CHOLELITHIASIS [None]
  - DEPRESSION [None]
  - ECCHYMOSIS [None]
  - HERNIA [None]
  - HERNIA REPAIR [None]
  - HYPOAESTHESIA [None]
  - ISCHAEMIA [None]
  - MALIGNANT BREAST LUMP REMOVAL [None]
  - MASTECTOMY [None]
  - NERVE INJURY [None]
  - OSTEOPENIA [None]
  - PERIPHERAL REVASCULARISATION [None]
  - SWELLING [None]
  - UTERINE LEIOMYOMA [None]
  - WOUND DEBRIDEMENT [None]
